FAERS Safety Report 16811865 (Version 2)
Quarter: 2019Q3

REPORT INFORMATION
  Report Type: Spontaneous
  Country: FR (occurrence: FR)
  Receive Date: 20190916
  Receipt Date: 20190926
  Transmission Date: 20191005
  Serious: Yes (Other)
  Sender: FDA-Public Use
  Company Number: FR-MYLANLABS-2019M1086490

PATIENT
  Age: 27 Year
  Sex: Male
  Weight: 72 kg

DRUGS (2)
  1. TENOFOVIR [Suspect]
     Active Substance: TENOFOVIR
     Indication: PROPHYLAXIS AGAINST HIV INFECTION
     Dosage: A LA DEMANDE (PRISE DE 2CP AU COURS DU DERNIER MOIS)
     Route: 048
     Dates: start: 20161229, end: 20190302
  2. EMTRIVA [Suspect]
     Active Substance: EMTRICITABINE
     Indication: PROPHYLAXIS AGAINST HIV INFECTION
     Dosage: A LA DEMANDE (PRISE DE 2CP AU COURS DU DERNIER MOIS)
     Route: 048
     Dates: start: 20161229, end: 20190302

REACTIONS (1)
  - Acute HIV infection [Not Recovered/Not Resolved]

NARRATIVE: CASE EVENT DATE: 201903
